FAERS Safety Report 19381490 (Version 1)
Quarter: 2021Q2

REPORT INFORMATION
  Report Type: Spontaneous
  Country: US (occurrence: US)
  Receive Date: 20210607
  Receipt Date: 20210607
  Transmission Date: 20210717
  Serious: Yes (Other)
  Sender: FDA-Public Use
  Company Number: US-MYLANLABS-2021M1032577

PATIENT
  Age: 14 Year

DRUGS (9)
  1. RITUXIMAB. [Suspect]
     Active Substance: RITUXIMAB
     Indication: EPSTEIN-BARR VIRUS ASSOCIATED LYMPHOPROLIFERATIVE DISORDER
     Dosage: 375 MILLIGRAM/SQ. METER FIRST INDUCTION THERAPY (CYCLE 1; 28 DAYS CYCLE) ??
     Route: 065
  2. BRENTUXIMAB VEDOTIN [Suspect]
     Active Substance: BRENTUXIMAB VEDOTIN
     Indication: EPSTEIN-BARR VIRUS ASSOCIATED LYMPHOPROLIFERATIVE DISORDER
     Dosage: 1.2 MILLIGRAM/KILOGRAM FIRST INDUCTION THERAPY (CYCLE 1; 28 DAYS CYCLE)
     Route: 065
  3. BRENTUXIMAB VEDOTIN [Suspect]
     Active Substance: BRENTUXIMAB VEDOTIN
     Dosage: 1.8 MILLIGRAM/KILOGRAM SECOND INDUCTION THERAPY (CYCLE 2; 42 DAYS CYCLE)??
     Route: 065
  4. BRENTUXIMAB VEDOTIN [Suspect]
     Active Substance: BRENTUXIMAB VEDOTIN
     Dosage: 1.8 MILLIGRAM/KILOGRAM MAINTENANCE THERAPY (CYCLES 3?7; 21 DAYS CYCLE)??
     Route: 065
  5. RITUXIMAB. [Suspect]
     Active Substance: RITUXIMAB
     Dosage: 375 MILLIGRAM/SQ. METER MAINTENANCE THERAPY (CYCLES 3?7; 21 DAYS CYCLE?..
     Route: 065
  6. RITUXIMAB. [Suspect]
     Active Substance: RITUXIMAB
     Dosage: 375 MILLIGRAM/SQ. METER MAINTENANCE CYCLES (CYCLE 8?9; 42 DAYS CYCLE?..
     Route: 065
  7. BRENTUXIMAB VEDOTIN [Suspect]
     Active Substance: BRENTUXIMAB VEDOTIN
     Dosage: 1.2 MILLIGRAM/KILOGRAM MAINTENANCE CYCLES (CYCLE 8?9; 42 DAYS CYCLE)??
     Route: 065
  8. PREDNISONE. [Suspect]
     Active Substance: PREDNISONE
     Indication: EPSTEIN-BARR VIRUS ASSOCIATED LYMPHOPROLIFERATIVE DISORDER
     Dosage: 20 MILLIGRAM/SQ. METER ADMINISTERED DURING MAINTENANCE CYCLES 3?5 ON DAYS 1?7
     Route: 065
  9. RITUXIMAB. [Suspect]
     Active Substance: RITUXIMAB
     Dosage: 375 MILLIGRAM/SQ. METER SECOND INDUCTION THERAPY (CYCLE 2; 42 DAYS CYCLE?..
     Route: 065

REACTIONS (2)
  - Neuralgia [Recovering/Resolving]
  - Osteomyelitis [Unknown]
